FAERS Safety Report 7533273-7 (Version None)
Quarter: 2011Q2

REPORT INFORMATION
  Report Type: 
  Country: None (occurrence: None)
  Receive Date: 20110608
  Receipt Date: 20050909
  Transmission Date: 20111010
  Serious: Yes (Hospitalization)
  Sender: FDA-Public Use
  Company Number: PHNR2005AU01010

PATIENT
  Sex: Female

DRUGS (2)
  1. INSULIN [Concomitant]
  2. CLOZAPINE [Suspect]
     Indication: SCHIZOPHRENIA
     Dosage: 200 MG, UNK
     Dates: start: 20011012

REACTIONS (1)
  - ABSCESS [None]
